FAERS Safety Report 11523878 (Version 1)
Quarter: 2015Q3

REPORT INFORMATION
  Report Type: Spontaneous
  Country: US (occurrence: US)
  Receive Date: 20150918
  Receipt Date: 20150918
  Transmission Date: 20151125
  Serious: Yes (Death, Other)
  Sender: FDA-Public Use
  Company Number: US-TAKEDA-TPA2011A08728

PATIENT

DRUGS (5)
  1. METFORMIN [Concomitant]
     Active Substance: METFORMIN HYDROCHLORIDE
     Dosage: 500 MG, UNK
     Dates: start: 20080607, end: 200904
  2. ACTOS [Suspect]
     Active Substance: PIOGLITAZONE HYDROCHLORIDE
     Indication: TYPE 2 DIABETES MELLITUS
     Dosage: 15 MG THEN 30 MG, UNK
     Route: 048
     Dates: start: 20021018, end: 20050128
  3. DIABETA                            /00145301/ [Concomitant]
     Dosage: 5 MG, UNK
     Dates: start: 20081010, end: 200904
  4. INSULIN NPH                        /01223407/ [Concomitant]
     Indication: DIABETES MELLITUS
     Dosage: UNK
     Dates: end: 20090303
  5. GLUCOTROL [Concomitant]
     Active Substance: GLIPIZIDE
     Dosage: 1 TAB, DAILY
     Dates: end: 20090315

REACTIONS (2)
  - Death [Fatal]
  - Bladder cancer [Unknown]

NARRATIVE: CASE EVENT DATE: 20081009
